FAERS Safety Report 4323992-8 (Version None)
Quarter: 2004Q1

REPORT INFORMATION
  Report Type: 
  Country: None (occurrence: None)
  Receive Date: 20040326
  Receipt Date: 20031204
  Transmission Date: 20041129
  Serious: No
  Sender: FDA-Public Use
  Company Number: US-GLAXOSMITHKLINE-A0442008A

PATIENT
  Age: 68 Year
  Sex: Female

DRUGS (12)
  1. ADVAIR DISKUS 100/50 [Suspect]
     Route: 055
  2. AVAPRO [Concomitant]
  3. ZOCOR [Concomitant]
  4. ESTRADIOL [Concomitant]
  5. NORVASC [Concomitant]
  6. CYCLOBENZAPRINE [Concomitant]
  7. EFFEXOR XR [Concomitant]
  8. PREVACID [Concomitant]
  9. CLONAZEPAM [Concomitant]
  10. RHINOCORT [Concomitant]
  11. COMBIVENT [Concomitant]
  12. MULTIVITAMIN [Concomitant]

REACTIONS (1)
  - GLOSSODYNIA [None]
